FAERS Safety Report 17313320 (Version 1)
Quarter: 2020Q1

REPORT INFORMATION
  Report Type: Spontaneous
  Country: US (occurrence: US)
  Receive Date: 20200124
  Receipt Date: 20200124
  Transmission Date: 20200409
  Serious: Yes (Hospitalization)
  Sender: FDA-Public Use
  Company Number: US-CURIUM-199900106

PATIENT
  Age: 48 Year
  Sex: Female

DRUGS (1)
  1. TECHNESCAN PYP [Suspect]
     Active Substance: TECHNETIUM TC-99M PYROPHOSPHATE
     Indication: MULTIPLE GATED ACQUISITION SCAN
     Dosage: UNKNOWN
     Route: 051
     Dates: start: 19991004, end: 19991004

REACTIONS (1)
  - Vomiting [Recovered/Resolved]

NARRATIVE: CASE EVENT DATE: 19991004
